FAERS Safety Report 25009956 (Version 2)
Quarter: 2025Q1

REPORT INFORMATION
  Report Type: Report from Study
  Country: US (occurrence: US)
  Receive Date: 20250225
  Receipt Date: 20250307
  Transmission Date: 20250409
  Serious: Yes (Hospitalization, Other)
  Sender: ALEXION PHARMACEUTICALS
  Company Number: US-AstraZeneca-CH-00809881A

PATIENT

DRUGS (1)
  1. ULTOMIRIS [Suspect]
     Active Substance: RAVULIZUMAB-CWVZ
     Indication: Neuromyelitis optica spectrum disorder
     Route: 065

REACTIONS (21)
  - General physical health deterioration [Unknown]
  - Pneumonia [Unknown]
  - Bradyphrenia [Unknown]
  - Memory impairment [Unknown]
  - Dizziness [Unknown]
  - Malaise [Unknown]
  - Headache [Unknown]
  - Fall [Unknown]
  - Peripheral swelling [Unknown]
  - Gait inability [Unknown]
  - Foaming at mouth [Unknown]
  - Dysstasia [Unknown]
  - Depression [Unknown]
  - Pain in extremity [Unknown]
  - Muscle spasms [Unknown]
  - Therapeutic product effect decreased [Unknown]
  - Oral candidiasis [Unknown]
  - Central nervous system lesion [Unknown]
  - Emotional disorder [Unknown]
  - Asthenia [Unknown]
  - Pain [Unknown]
